FAERS Safety Report 7559958-4 (Version None)
Quarter: 2011Q2

REPORT INFORMATION
  Report Type: 
  Country: None (occurrence: None)
  Receive Date: 20110621
  Receipt Date: 20110610
  Transmission Date: 20111010
  Serious: Yes (Other)
  Sender: FDA-Public Use
  Company Number: PHHY2011US32017

PATIENT
  Age: 27 Year
  Sex: Female
  Weight: 113 kg

DRUGS (6)
  1. FLUOXETINE HCL [Concomitant]
     Indication: DEPRESSED MOOD
     Dosage: 40 MG, DAILY
     Route: 048
     Dates: start: 20021220, end: 20110426
  2. IBUPROFEN [Concomitant]
     Dosage: UNK UKN, UNK
  3. METFORMIN HCL [Concomitant]
     Dosage: UNK UKN, UNK
  4. GILENYA [Suspect]
     Dosage: UNK UKN, UNK
     Route: 048
     Dates: start: 20110131
  5. NEURONTIN [Concomitant]
     Indication: PAIN
     Dosage: UNK UKN, UNK
  6. PREDNISONE [Concomitant]
     Dosage: UNK UKN, UNK

REACTIONS (3)
  - DRUG INEFFECTIVE [None]
  - OEDEMA PERIPHERAL [None]
  - ELECTROCARDIOGRAM ABNORMAL [None]
